APPROVED DRUG PRODUCT: BUSPIRONE HYDROCHLORIDE
Active Ingredient: BUSPIRONE HYDROCHLORIDE
Strength: 30MG
Dosage Form/Route: TABLET;ORAL
Application: A202330 | Product #004 | TE Code: AB
Applicant: STRIDES PHARMA GLOBAL PTE LTD
Approved: Aug 25, 2014 | RLD: No | RS: No | Type: RX